FAERS Safety Report 6103766-8 (Version None)
Quarter: 2009Q1

REPORT INFORMATION
  Report Type: 
  Country: None (occurrence: None)
  Receive Date: 20090305
  Receipt Date: 20090303
  Transmission Date: 20090719
  Serious: Yes (Life-Threatening, Hospitalization)
  Sender: FDA-Public Use
  Company Number: NL-JNJFOC-20031102622

PATIENT
  Age: 58 Year
  Sex: Female

DRUGS (2)
  1. INFLIXIMAB [Suspect]
     Indication: RHEUMATOID ARTHRITIS
     Dosage: 8 INFUSIONS
     Route: 042
  2. METHOTREXATE [Suspect]
     Indication: RHEUMATOID ARTHRITIS

REACTIONS (18)
  - ASPERGILLOSIS [None]
  - BACTERIA SPUTUM IDENTIFIED [None]
  - BRONCHOPULMONARY ASPERGILLOSIS [None]
  - CITROBACTER INFECTION [None]
  - COMA [None]
  - DISSEMINATED INTRAVASCULAR COAGULATION [None]
  - DISSEMINATED TUBERCULOSIS [None]
  - DYSPNOEA [None]
  - GENITAL HERPES [None]
  - HAEMOPHILUS INFECTION [None]
  - HEMIPARESIS [None]
  - HYPONATRAEMIA [None]
  - IMMUNOSUPPRESSION [None]
  - PANCYTOPENIA [None]
  - POLYNEUROPATHY [None]
  - RESPIRATORY FAILURE [None]
  - RHEUMATOID ARTHRITIS [None]
  - SHOCK [None]
